FAERS Safety Report 23625916 (Version 1)
Quarter: 2024Q1

REPORT INFORMATION
  Report Type: Spontaneous
  Country: DE (occurrence: DE)
  Receive Date: 20240313
  Receipt Date: 20240313
  Transmission Date: 20240410
  Serious: Yes (Other)
  Sender: FDA-Public Use
  Company Number: DE-ACIS-20240378

PATIENT

DRUGS (1)
  1. DICLOFENAC SODIUM [Suspect]
     Active Substance: DICLOFENAC\DICLOFENAC SODIUM
     Indication: Actinic keratosis
     Dosage: 1 DF, QD (2X DAY (MORNING AND EVENING)THE GEL WAS APPLIED TO THE CHEEKS FOR APPROXIMATELY 3 MONTHS)
     Route: 065
     Dates: start: 2023, end: 202401

REACTIONS (1)
  - Atrial fibrillation [Not Recovered/Not Resolved]

NARRATIVE: CASE EVENT DATE: 20240101
